FAERS Safety Report 12406005 (Version 1)
Quarter: 2016Q2

REPORT INFORMATION
  Report Type: Spontaneous
  Country: US (occurrence: None)
  Receive Date: 20160525
  Receipt Date: 20160525
  Transmission Date: 20160815
  Serious: Yes (Disabling)
  Sender: FDA-Public Use
  Company Number: None

PATIENT
  Age: 49 Year
  Sex: Male
  Weight: 79.38 kg

DRUGS (3)
  1. MULTI VITAMIN [Concomitant]
     Active Substance: VITAMINS
  2. VALACYCLOVIR [Suspect]
     Active Substance: VALACYCLOVIR HYDROCHLORIDE
     Indication: ORAL HERPES
     Route: 048
     Dates: start: 20160518, end: 20160520
  3. AMOC/K CLAV [Concomitant]

REACTIONS (5)
  - Product substitution issue [None]
  - Paraesthesia [None]
  - Drug ineffective [None]
  - Lower respiratory tract infection [None]
  - Oral herpes [None]

NARRATIVE: CASE EVENT DATE: 20160518
